FAERS Safety Report 14361495 (Version 1)
Quarter: 2018Q1

REPORT INFORMATION
  Report Type: Report from Study
  Country: JP (occurrence: JP)
  Receive Date: 20180108
  Receipt Date: 20180108
  Transmission Date: 20180509
  Serious: Yes (Other)
  Sender: FDA-Public Use
  Company Number: JP-UCBSA-2017024164

PATIENT
  Age: 40 Year
  Sex: Female
  Weight: 39 kg

DRUGS (35)
  1. PROGRAF [Suspect]
     Active Substance: TACROLIMUS\TACROLIMUS ANHYDROUS
     Indication: RHEUMATOID ARTHRITIS
     Dosage: 2 MG DAILY
     Route: 048
     Dates: end: 20131004
  2. PREDONINE [Suspect]
     Active Substance: PREDNISOLONE
     Dosage: 10 MG DAILY
     Route: 048
     Dates: start: 20141102
  3. DECADRON [Concomitant]
     Active Substance: DEXAMETHASONE
     Indication: RHEUMATOID ARTHRITIS
     Dosage: 1.65 MG, ONCE DAILY (QD)
     Route: 014
     Dates: start: 20130618, end: 20130618
  4. DECADRON [Concomitant]
     Active Substance: DEXAMETHASONE
     Dosage: 1.65 MG, ONCE DAILY (QD)
     Route: 014
     Dates: start: 20130806, end: 20130806
  5. DECADRON [Concomitant]
     Active Substance: DEXAMETHASONE
     Dosage: 1.65 MG, ONCE DAILY (QD)
     Route: 014
     Dates: start: 20131214, end: 20131214
  6. FOLIAMIN [Concomitant]
     Active Substance: FOLIC ACID
     Indication: PROPHYLAXIS
     Dosage: 5 MG WEEKLY
     Route: 048
  7. GASTER [Concomitant]
     Active Substance: FAMOTIDINE
     Indication: PRODUCT USED FOR UNKNOWN INDICATION
     Dosage: 40 MG, UNK
     Route: 048
     Dates: start: 20131214
  8. CERTOLIZUMAB PEGOL RA [Suspect]
     Active Substance: CERTOLIZUMAB PEGOL
     Indication: RHEUMATOID ARTHRITIS
     Dosage: 400 MG, EV 2 WEEKS(QOW)
     Route: 058
     Dates: start: 20130615, end: 20130713
  9. DEXAMETHASONE PALMITATE [Concomitant]
     Active Substance: DEXAMETHASONE
     Indication: RHEUMATOID ARTHRITIS
     Dosage: 2.5 MG, ONCE DAILY (QD)
     Route: 042
     Dates: start: 20130629, end: 20130629
  10. DECADRON [Concomitant]
     Active Substance: DEXAMETHASONE
     Dosage: 1.65 MG, ONCE DAILY (QD)
     Route: 014
     Dates: start: 20140125, end: 20140125
  11. MUCOSTA [Concomitant]
     Active Substance: REBAMIPIDE
     Indication: PRODUCT USED FOR UNKNOWN INDICATION
     Dosage: UNK
     Route: 048
     Dates: end: 20140809
  12. CERTOLIZUMAB PEGOL RA [Suspect]
     Active Substance: CERTOLIZUMAB PEGOL
     Dosage: 200 MG, EV 2 WEEKS(QOW)
     Route: 058
     Dates: start: 20130727, end: 20130727
  13. TOFACITINIB CITRATE [Suspect]
     Active Substance: TOFACITINIB CITRATE
     Indication: RHEUMATOID ARTHRITIS
     Dosage: 10 MG DAILY
     Route: 048
     Dates: start: 20140629
  14. LOXONIN [Concomitant]
     Active Substance: LOXOPROFEN SODIUM
     Indication: RHEUMATOID ARTHRITIS
     Dosage: 60 MG
     Route: 048
     Dates: end: 20140809
  15. DEXAMETHASONE PALMITATE [Concomitant]
     Active Substance: DEXAMETHASONE
     Dosage: 2.5 MG, ONCE DAILY (QD)
     Route: 042
     Dates: start: 20140531, end: 20140531
  16. DECADRON [Concomitant]
     Active Substance: DEXAMETHASONE
     Dosage: 1.65 MG, ONCE DAILY (QD)
     Route: 014
     Dates: start: 20130625, end: 20130625
  17. DECADRON [Concomitant]
     Active Substance: DEXAMETHASONE
     Dosage: 1.65 MG, ONCE DAILY (QD)
     Route: 014
     Dates: start: 20140201, end: 20140201
  18. CERTOLIZUMAB PEGOL RA [Suspect]
     Active Substance: CERTOLIZUMAB PEGOL
     Dosage: 400 MG, EV 4 WEEKS
     Route: 058
     Dates: start: 20130810, end: 20131214
  19. PREDONINE [Suspect]
     Active Substance: PREDNISOLONE
     Dosage: 9 MG DAILY
     Route: 048
     Dates: start: 20141019, end: 20141101
  20. DEXAMETHASONE PALMITATE [Concomitant]
     Active Substance: DEXAMETHASONE
     Dosage: 2.5 MG, ONCE DAILY (QD)
     Route: 042
     Dates: start: 20131230, end: 20131230
  21. DECADRON [Concomitant]
     Active Substance: DEXAMETHASONE
     Dosage: 1.65 MG, ONCE DAILY (QD)
     Route: 014
     Dates: start: 20130802, end: 20130802
  22. CERTOLIZUMAB PEGOL RA [Suspect]
     Active Substance: CERTOLIZUMAB PEGOL
     Dosage: 200 MG, EV 2 WEEKS(QOW)
     Route: 058
     Dates: start: 20131228, end: 20140628
  23. RHEUMATREX [Suspect]
     Active Substance: METHOTREXATE SODIUM
     Indication: RHEUMATOID ARTHRITIS
     Dosage: 14 MG, WEEKLY (QW)
     Route: 048
  24. PROGRAF [Suspect]
     Active Substance: TACROLIMUS\TACROLIMUS ANHYDROUS
     Dosage: 3 MG DAILY
     Route: 048
     Dates: start: 20131005, end: 20140628
  25. DEXAMETHASONE PALMITATE [Concomitant]
     Active Substance: DEXAMETHASONE
     Dosage: 2.5 MG, ONCE DAILY (QD)
     Route: 042
     Dates: start: 20131130, end: 20131130
  26. DECADRON [Concomitant]
     Active Substance: DEXAMETHASONE
     Dosage: 1.65 MG, ONCE DAILY (QD)
     Route: 014
     Dates: start: 20130730, end: 20130730
  27. DECADRON [Concomitant]
     Active Substance: DEXAMETHASONE
     Dosage: 1.65 MG, ONCE DAILY (QD)
     Route: 014
     Dates: start: 20140329, end: 20140329
  28. DECADRON [Concomitant]
     Active Substance: DEXAMETHASONE
     Dosage: 1.65 MG, ONCE DAILY (QD)
     Route: 014
     Dates: start: 20130812, end: 20130812
  29. DECADRON [Concomitant]
     Active Substance: DEXAMETHASONE
     Dosage: 1.65 MG, ONCE DAILY (QD)
     Route: 014
     Dates: start: 20130907, end: 20130907
  30. DECADRON [Concomitant]
     Active Substance: DEXAMETHASONE
     Dosage: 1.65 MG, ONCE DAILY (QD)
     Route: 014
     Dates: start: 20130928, end: 20130928
  31. DECADRON [Concomitant]
     Active Substance: DEXAMETHASONE
     Dosage: 1.65 MG, ONCE DAILY (QD)
     Route: 014
     Dates: start: 20140316, end: 20140316
  32. PREDONINE [Suspect]
     Active Substance: PREDNISOLONE
     Indication: RHEUMATOID ARTHRITIS
     Dosage: 10 MG DAILY
     Route: 048
     Dates: end: 20141018
  33. DECADRON [Concomitant]
     Active Substance: DEXAMETHASONE
     Dosage: 1.65 MG, ONCE DAILY (QD)
     Route: 014
     Dates: start: 20131003, end: 20131003
  34. BONOTEO [Concomitant]
     Active Substance: MINODRONIC ACID
     Indication: PROPHYLAXIS
     Dosage: 50 MG DAILY
     Route: 048
     Dates: start: 20140524
  35. ALFAROL [Concomitant]
     Active Substance: ALFACALCIDOL
     Indication: PROPHYLAXIS
     Dosage: 1 MG DAILY
     Route: 048
     Dates: start: 20140921

REACTIONS (3)
  - Purulence [Recovered/Resolved]
  - Cellulitis [Recovered/Resolved]
  - Arthritis [Recovered/Resolved]

NARRATIVE: CASE EVENT DATE: 20140222
